FAERS Safety Report 10335149 (Version 1)
Quarter: 2014Q3

REPORT INFORMATION
  Report Type: Spontaneous
  Country: US (occurrence: US)
  Receive Date: 20140723
  Receipt Date: 20140723
  Transmission Date: 20150326
  Serious: No
  Sender: FDA-Public Use
  Company Number: US-BAYER-2014-110114

PATIENT
  Sex: Female

DRUGS (3)
  1. CLIMARA [Suspect]
     Active Substance: ESTRADIOL
     Indication: HORMONE REPLACEMENT THERAPY
     Dosage: DAILY DOSE .1 MG
     Route: 062
  2. ESTRADIOL HEMIHYDRATE (6.5) [Suspect]
     Active Substance: ESTRADIOL HEMIHYDRATE
     Indication: HORMONE REPLACEMENT THERAPY
     Dosage: DAILY DOSE .05 MG
     Route: 062
  3. ESTRADIOL HEMIHYDRATE (6.5) [Suspect]
     Active Substance: ESTRADIOL HEMIHYDRATE
     Indication: HORMONE REPLACEMENT THERAPY
     Dosage: DAILY DOSE .1 MG
     Route: 062

REACTIONS (3)
  - Sexual dysfunction [None]
  - Drug dose omission [None]
  - Product adhesion issue [None]
